FAERS Safety Report 16646839 (Version 1)
Quarter: 2019Q3

REPORT INFORMATION
  Report Type: Spontaneous
  Country: DE (occurrence: DE)
  Receive Date: 20190730
  Receipt Date: 20190730
  Transmission Date: 20191004
  Serious: Yes (Hospitalization)
  Sender: FDA-Public Use
  Company Number: DE-BAYER-2019-138794

PATIENT
  Age: 24 Year
  Sex: Female

DRUGS (2)
  1. KYLEENA [Suspect]
     Active Substance: LEVONORGESTREL
     Indication: CONTRACEPTION
     Dosage: 17.5 MCG/24HR, CONT
     Route: 015
     Dates: start: 201809
  2. VISANNE [Interacting]
     Active Substance: DIENOGEST
     Indication: ENDOMETRIOSIS
     Dosage: 2 MG, QD
     Route: 048
     Dates: start: 201905

REACTIONS (5)
  - Ovarian cyst [Recovered/Resolved]
  - Endometriosis [Recovered/Resolved]
  - Off label use [None]
  - Abdominal pain lower [Recovered/Resolved]
  - Product monitoring error [None]
